FAERS Safety Report 5122862-5 (Version None)
Quarter: 2006Q4

REPORT INFORMATION
  Report Type: 
  Country: None (occurrence: None)
  Receive Date: 20061005
  Receipt Date: 20060925
  Transmission Date: 20070319
  Serious: Yes (Other)
  Sender: FDA-Public Use
  Company Number: 2006109909

PATIENT
  Age: 54 Year
  Sex: Male

DRUGS (1)
  1. GEODON [Suspect]
     Dosage: 120 MG (60 MG,2 IN 1 D)

REACTIONS (3)
  - DRUG ABUSER [None]
  - INTENTIONAL OVERDOSE [None]
  - SUICIDE ATTEMPT [None]
